FAERS Safety Report 17934635 (Version 1)
Quarter: 2020Q2

REPORT INFORMATION
  Report Type: Spontaneous
  Country: US (occurrence: US)
  Receive Date: 20200623
  Receipt Date: 20200623
  Transmission Date: 20200714
  Serious: Yes (Disabling)
  Sender: FDA-Public Use
  Company Number: None

PATIENT
  Age: 59 Year
  Sex: Female
  Weight: 105.75 kg

DRUGS (19)
  1. VITAMIN C [Concomitant]
     Active Substance: ASCORBIC ACID
  2. LEXAPRO [Concomitant]
     Active Substance: ESCITALOPRAM OXALATE
  3. PRIOBIOTIC [Concomitant]
  4. CLOZARIL [Suspect]
     Active Substance: CLOZAPINE
  5. BUSPAR [Suspect]
     Active Substance: BUSPIRONE HYDROCHLORIDE
  6. ATARAX [Concomitant]
     Active Substance: HYDROXYZINE HYDROCHLORIDE
  7. TRAZODONE [Concomitant]
     Active Substance: TRAZODONE HYDROCHLORIDE
  8. VITAMIN D [Concomitant]
     Active Substance: VITAMIN D NOS
  9. LAMOTRIGINE 25 MG [Suspect]
     Active Substance: LAMOTRIGINE
     Indication: OBSESSIVE-COMPULSIVE DISORDER
     Dosage: ?          QUANTITY:2 TABLET(S);?
     Route: 048
     Dates: start: 20190101, end: 20200618
  10. COGENTIN [Concomitant]
     Active Substance: BENZTROPINE MESYLATE
  11. TRICOR [Concomitant]
     Active Substance: FENOFIBRATE
  12. LANZOPRAZOLE [Concomitant]
     Active Substance: LANSOPRAZOLE
  13. CALCIUM [Concomitant]
     Active Substance: CALCIUM
  14. VRAYLAR [Suspect]
     Active Substance: CARIPRAZINE
     Indication: BIPOLAR DISORDER
     Dosage: ?          QUANTITY:1 CAPSULE(S);?
     Route: 048
     Dates: start: 20200609, end: 20200618
  15. ABILIFY [Suspect]
     Active Substance: ARIPIPRAZOLE
  16. ZOLOFT [Suspect]
     Active Substance: SERTRALINE HYDROCHLORIDE
  17. MULTIVITAMIN [Concomitant]
     Active Substance: VITAMINS
  18. CARDIZEM [Concomitant]
     Active Substance: DILTIAZEM HYDROCHLORIDE
  19. MANGESIUM [Concomitant]

REACTIONS (12)
  - Akathisia [None]
  - Tardive dyskinesia [None]
  - Obsessive-compulsive disorder [None]
  - Anxiety [None]
  - Maternal exposure during pregnancy [None]
  - Bipolar disorder [None]
  - Mania [None]
  - Maternal drugs affecting foetus [None]
  - Oral pain [None]
  - Skin exfoliation [None]
  - Dystonia [None]
  - Pregnancy [None]

NARRATIVE: CASE EVENT DATE: 20200620
